FAERS Safety Report 15119493 (Version 1)
Quarter: 2018Q3

REPORT INFORMATION
  Report Type: Spontaneous
  Country: US (occurrence: US)
  Receive Date: 20180709
  Receipt Date: 20180709
  Transmission Date: 20181010
  Serious: No
  Sender: FDA-Public Use
  Company Number: US-PFIZER INC-2018273551

PATIENT
  Age: 71 Year
  Sex: Female

DRUGS (7)
  1. SKELAXIN [Concomitant]
     Active Substance: METAXALONE
     Dosage: UNK
  2. GENOTROPIN [Suspect]
     Active Substance: SOMATROPIN
     Dosage: 0.2 MG, DAILY
     Dates: start: 2018
  3. NEXIUM [Concomitant]
     Active Substance: ESOMEPRAZOLE MAGNESIUM
     Dosage: UNK
  4. ZOLOFT [Concomitant]
     Active Substance: SERTRALINE HYDROCHLORIDE
     Dosage: UNK
  5. HYDROXYZINE [Concomitant]
     Active Substance: HYDROXYZINE HYDROCHLORIDE
     Dosage: UNK
  6. GENOTROPIN [Suspect]
     Active Substance: SOMATROPIN
     Dosage: 0.3 MG, DAILY
     Dates: start: 2006
  7. SYNTHROID [Concomitant]
     Active Substance: LEVOTHYROXINE SODIUM
     Indication: HORMONE REPLACEMENT THERAPY
     Dosage: 88 UG, DAILY

REACTIONS (12)
  - Asthenia [Unknown]
  - Dry skin [Unknown]
  - Fatigue [Unknown]
  - Temperature intolerance [Unknown]
  - Amnesia [Unknown]
  - Insomnia [Unknown]
  - Anxiety [Unknown]
  - Arthralgia [Unknown]
  - Decreased appetite [Unknown]
  - Stress [Unknown]
  - Insulin-like growth factor increased [Unknown]
  - Drug dose omission [Unknown]

NARRATIVE: CASE EVENT DATE: 20180423
